FAERS Safety Report 14193309 (Version 1)
Quarter: 2017Q4

REPORT INFORMATION
  Report Type: Report from Study
  Country: None (occurrence: US)
  Receive Date: 20171115
  Receipt Date: 20171115
  Transmission Date: 20180321
  Serious: Yes (Other)
  Sender: FDA-Public Use
  Company Number: US-ABBVIE-17K-163-2157707-00

PATIENT
  Age: 44 Year
  Sex: Male

DRUGS (4)
  1. OXYCODONE [Suspect]
     Active Substance: OXYCODONE
     Indication: PRODUCT USED FOR UNKNOWN INDICATION
     Route: 065
  2. PANTOPRAZOLE [Concomitant]
     Active Substance: PANTOPRAZOLE
     Indication: GASTROOESOPHAGEAL REFLUX DISEASE
  3. HUMIRA [Suspect]
     Active Substance: ADALIMUMAB
     Indication: CROHN^S DISEASE
     Route: 058
     Dates: start: 201301, end: 201312
  4. HUMIRA [Suspect]
     Active Substance: ADALIMUMAB
     Route: 058
     Dates: start: 2014

REACTIONS (4)
  - Small intestinal stenosis [Recovered/Resolved]
  - Nausea [Recovered/Resolved]
  - Feeding disorder [Recovered/Resolved]
  - Small intestinal obstruction [Recovered/Resolved]

NARRATIVE: CASE EVENT DATE: 201311
